FAERS Safety Report 11913694 (Version 8)
Quarter: 2018Q4

REPORT INFORMATION
  Report Type: Spontaneous
  Country: US (occurrence: US)
  Receive Date: 20160113
  Receipt Date: 20181015
  Transmission Date: 20190204
  Serious: Yes (Hospitalization)
  Sender: FDA-Public Use
  Company Number: US-PFIZER INC-2016003961

PATIENT
  Age: 47 Year
  Sex: Female

DRUGS (1)
  1. LYRICA [Suspect]
     Active Substance: PREGABALIN
     Dosage: UNK

REACTIONS (8)
  - Vomiting [Unknown]
  - Depression [Unknown]
  - Headache [Unknown]
  - Malaise [Unknown]
  - Migraine [Unknown]
  - Fear [Unknown]
  - Pain [Unknown]
  - Paranoia [Unknown]
